FAERS Safety Report 10243189 (Version 2)
Quarter: 2014Q3

REPORT INFORMATION
  Report Type: Spontaneous
  Country: US (occurrence: None)
  Receive Date: 20140616
  Receipt Date: 20140804
  Transmission Date: 20150326
  Serious: Yes (Other)
  Sender: FDA-Public Use
  Company Number: UTC-048497

PATIENT
  Age: 42 Year
  Sex: Female
  Weight: 121.5 kg

DRUGS (2)
  1. TYVASO [Suspect]
     Active Substance: TREPROSTINIL
     Indication: COR PULMONALE CHRONIC
     Route: 055
     Dates: start: 20140421
  2. REVATIO (SILDENAFIL CITRATE) [Concomitant]

REACTIONS (6)
  - Oedema [None]
  - Nausea [None]
  - Ascites [None]
  - Weight increased [None]
  - Hypotension [None]
  - Dizziness [None]

NARRATIVE: CASE EVENT DATE: 201404
